FAERS Safety Report 8886638 (Version 2)
Quarter: 2012Q4

REPORT INFORMATION
  Report Type: 
  Country: US (occurrence: US)
  Receive Date: 20121105
  Receipt Date: 20121218
  Transmission Date: 20130627
  Serious: No
  Sender: FDA-Public Use
  Company Number: US-PFIZER INC-2012275206

PATIENT
  Age: 42 Year
  Sex: Female
  Weight: 49.89 kg

DRUGS (5)
  1. GEODON [Suspect]
     Indication: ANXIETY
     Dosage: 40 mg, 1x/day
     Route: 048
     Dates: start: 2009, end: 2012
  2. GEODON [Suspect]
     Dosage: 80 mg, 1x/day
     Route: 048
     Dates: start: 2012, end: 2012
  3. GEODON [Suspect]
     Dosage: 40 mg, 1x/day
     Route: 048
     Dates: start: 2012, end: 2012
  4. GEODON [Suspect]
     Dosage: 80 mg, 1x/day
     Route: 048
     Dates: start: 201212, end: 20121204
  5. TRAZODONE [Concomitant]
     Dosage: UNK

REACTIONS (8)
  - Malaise [Unknown]
  - Insomnia [Unknown]
  - Dizziness [Recovered/Resolved]
  - Fatigue [Unknown]
  - Feeling abnormal [Unknown]
  - Hypersomnia [Unknown]
  - Drug ineffective for unapproved indication [Unknown]
  - Off label use [Recovered/Resolved]
